FAERS Safety Report 16769436 (Version 1)
Quarter: 2019Q3

REPORT INFORMATION
  Report Type: Report from Study
  Country: FR (occurrence: FR)
  Receive Date: 20190903
  Receipt Date: 20190903
  Transmission Date: 20191005
  Serious: Yes (Death, Other)
  Sender: FDA-Public Use
  Company Number: FR-JAZZ-2019-FR-012285

PATIENT

DRUGS (5)
  1. DEFITELIO [Suspect]
     Active Substance: DEFIBROTIDE SODIUM
     Dosage: 24.69 MG/KG, QD
     Dates: start: 20190712, end: 20190714
  2. DEFITELIO [Suspect]
     Active Substance: DEFIBROTIDE SODIUM
     Dosage: 19.87 MG/KG, QD
     Dates: start: 20190714
  3. DEFITELIO [Suspect]
     Active Substance: DEFIBROTIDE SODIUM
     Indication: VENOOCCLUSIVE DISEASE
     Dosage: 23.07 MG/KG, QD
     Dates: start: 20190623, end: 2019
  4. FUROSEMIDE. [Concomitant]
     Active Substance: FUROSEMIDE
     Indication: VENOOCCLUSIVE DISEASE
  5. ALBUMIN [Concomitant]
     Active Substance: ALBUMIN HUMAN
     Indication: VENOOCCLUSIVE DISEASE

REACTIONS (8)
  - Coagulopathy [Unknown]
  - Haemorrhage [Unknown]
  - Underdose [Unknown]
  - Haematuria [Fatal]
  - Respiratory failure [Fatal]
  - Renal failure [Unknown]
  - Haemodynamic instability [Fatal]
  - Infection [Fatal]

NARRATIVE: CASE EVENT DATE: 20190623
